FAERS Safety Report 6870095-4 (Version None)
Quarter: 2010Q3

REPORT INFORMATION
  Report Type: 
  Country: None (occurrence: None)
  Receive Date: 20100722
  Receipt Date: 20090721
  Transmission Date: 20110219
  Serious: Yes (Other)
  Sender: FDA-Public Use
  Company Number: US-PFIZER INC-2008056557

PATIENT
  Sex: Female
  Weight: 68.027 kg

DRUGS (15)
  1. CHANTIX [Suspect]
     Indication: SMOKING CESSATION THERAPY
     Dosage: 1 MG, 1X/DAY
     Route: 048
     Dates: start: 20080608, end: 20081204
  2. CHANTIX [Suspect]
     Indication: NICOTINE DEPENDENCE
     Dosage: UNKNOWN
     Route: 048
     Dates: start: 20090626
  3. PREDNISONE TAB [Suspect]
     Indication: COLITIS ULCERATIVE
     Dosage: UNK
  4. ASACOL [Concomitant]
     Dosage: UNK
  5. VALIUM [Concomitant]
     Dosage: 25 MG, 1X/DAY
  6. GEODON [Concomitant]
     Dosage: 80 MG, 2X/DAY
  7. ACTONEL [Concomitant]
  8. CALCIUM [Concomitant]
  9. SYNTHROID [Concomitant]
  10. MULTI-VITAMINS [Concomitant]
  11. PROVIGIL [Concomitant]
     Dosage: 200 MG, UNK
  12. LAMICTAL [Concomitant]
     Dosage: 100 MG, 1X/DAY IN AM
  13. LAMICTAL [Concomitant]
     Dosage: 200 MG, 1X/DAY IN PM
  14. AMBIEN [Concomitant]
     Dosage: 12.5 MG, 1X/DAY AT NIGHT
  15. ROZEREM [Concomitant]
     Dosage: 8 MG, 1X/DAY AT NIGHT

REACTIONS (13)
  - AGITATION [None]
  - ANXIETY [None]
  - AVERSION [None]
  - CONSTIPATION [None]
  - DEPRESSION [None]
  - DYSGEUSIA [None]
  - FRUSTRATION [None]
  - HEADACHE [None]
  - OSTEOPOROSIS [None]
  - SALIVARY HYPERSECRETION [None]
  - SELF ESTEEM DECREASED [None]
  - SLEEP DISORDER [None]
  - STRESS [None]
